FAERS Safety Report 9407721 (Version 3)
Quarter: 2016Q2

REPORT INFORMATION
  Report Type: Spontaneous
  Country: FR (occurrence: FR)
  Receive Date: 20130718
  Receipt Date: 20160502
  Transmission Date: 20160815
  Serious: Yes (Life-Threatening, Hospitalization, Other)
  Sender: FDA-Public Use
  Company Number: FR-ELI_LILLY_AND_COMPANY-FR201307004241

PATIENT
  Age: 57 Year
  Sex: Male

DRUGS (5)
  1. ZYPADHERA [Suspect]
     Active Substance: OLANZAPINE PAMOATE
     Indication: PSYCHOTIC DISORDER
     Dosage: 300 MG, 2/M
     Route: 030
     Dates: start: 201301, end: 20130710
  2. VALIUM [Concomitant]
     Active Substance: DIAZEPAM
     Indication: SCHIZOPHRENIA
     Dosage: 30 GTT, TID, AS NEEDED
  3. ZYPADHERA [Suspect]
     Active Substance: OLANZAPINE PAMOATE
     Indication: SCHIZOPHRENIA
  4. ZOPICLONE [Concomitant]
     Active Substance: ZOPICLONE
     Indication: SCHIZOPHRENIA
     Dosage: UNK, UNKNOWN
  5. TERCIAN                            /00759301/ [Concomitant]
     Active Substance: CYAMEMAZINE
     Indication: SCHIZOPHRENIA
     Dosage: BETWEEN 20 TO 80 DROPS,  TID
     Dates: start: 201301

REACTIONS (14)
  - Hyperthermia [Recovered/Resolved]
  - Confusional state [Recovered/Resolved]
  - Lung disorder [Unknown]
  - Agitation [Recovering/Resolving]
  - Vertigo [Recovered/Resolved]
  - Aggression [Recovered/Resolved]
  - Tongue spasm [Unknown]
  - Delirium [Recovering/Resolving]
  - Dysarthria [Recovered/Resolved]
  - Irritability [Unknown]
  - Coma [Recovered/Resolved]
  - Respiratory distress [Recovered/Resolved]
  - Tachycardia [Recovered/Resolved]
  - Hallucination [Unknown]

NARRATIVE: CASE EVENT DATE: 20130710
